FAERS Safety Report 9709417 (Version 1)
Quarter: 2013Q4

REPORT INFORMATION
  Report Type: Report from Study
  Country: BR (occurrence: BR)
  Receive Date: 20131126
  Receipt Date: 20131126
  Transmission Date: 20140711
  Serious: Yes (Hospitalization, Other)
  Sender: FDA-Public Use
  Company Number: BR-ROCHE-1307203

PATIENT
  Age: 34 Year
  Sex: Female
  Weight: 86 kg

DRUGS (4)
  1. ACTEMRA [Suspect]
     Indication: RHEUMATOID ARTHRITIS
     Route: 042
     Dates: start: 20120330
  2. ACTEMRA [Suspect]
     Route: 042
     Dates: start: 20131114
  3. NAPROXEN [Concomitant]
     Indication: PAIN
     Route: 065
  4. PREDNISONE [Concomitant]
     Indication: PAIN

REACTIONS (13)
  - Malaise [Unknown]
  - Oxygen saturation decreased [Unknown]
  - Blood pressure decreased [Unknown]
  - Dehydration [Unknown]
  - Gastroenteritis [Unknown]
  - Rotavirus infection [Recovered/Resolved]
  - Vomiting [Unknown]
  - Migraine [Recovered/Resolved]
  - Choking sensation [Unknown]
  - Cough [Unknown]
  - Fatigue [Unknown]
  - Rash [Unknown]
  - Abdominal pain [Recovered/Resolved]
